FAERS Safety Report 24247779 (Version 1)
Quarter: 2024Q3

REPORT INFORMATION
  Report Type: Spontaneous
  Country: US (occurrence: None)
  Receive Date: 20240826
  Receipt Date: 20240826
  Transmission Date: 20241017
  Serious: Yes (Death, Other)
  Sender: ASTRAZENECA
  Company Number: 2024A191064

PATIENT
  Age: 25113 Day
  Sex: Female
  Weight: 63.5 kg

DRUGS (1)
  1. TEZSPIRE [Suspect]
     Active Substance: TEZEPELUMAB-EKKO
     Indication: Asthma
     Route: 058
     Dates: end: 20240724

REACTIONS (2)
  - Immunodeficiency [Fatal]
  - Meningitis [Unknown]

NARRATIVE: CASE EVENT DATE: 20240729
